FAERS Safety Report 4510568-2 (Version None)
Quarter: 2004Q4

REPORT INFORMATION
  Report Type: 
  Country: None (occurrence: None)
  Receive Date: 20041122
  Receipt Date: 20041108
  Transmission Date: 20050328
  Serious: Yes (Hospitalization, Other)
  Sender: FDA-Public Use
  Company Number: HQWYE225303NOV04

PATIENT
  Age: 4 Month
  Sex: Male

DRUGS (2)
  1. CHILDREN'S ADVIL [Suspect]
     Indication: PYREXIA
     Dosage: 1 DOSE/KG THREE TIMES DAILY
     Route: 048
     Dates: start: 20040926, end: 20040929
  2. CHILDREN'S ADVIL [Suspect]
     Indication: RHINITIS
     Dosage: 1 DOSE/KG THREE TIMES DAILY
     Route: 048
     Dates: start: 20040926, end: 20040929

REACTIONS (3)
  - CELLULITIS [None]
  - ERYSIPELAS [None]
  - LYMPHADENOPATHY [None]
